FAERS Safety Report 6864573-1 (Version None)
Quarter: 2010Q3

REPORT INFORMATION
  Report Type: 
  Country: None (occurrence: None)
  Receive Date: 20100721
  Receipt Date: 20080527
  Transmission Date: 20110219
  Serious: No
  Sender: FDA-Public Use
  Company Number: US-PFIZER INC-2008028246

PATIENT
  Sex: Female
  Weight: 54.5 kg

DRUGS (3)
  1. CHANTIX [Suspect]
     Indication: SMOKING CESSATION THERAPY
     Dates: start: 20080314
  2. VALSARTAN [Concomitant]
  3. LIPITOR [Concomitant]

REACTIONS (5)
  - CHILLS [None]
  - FLATULENCE [None]
  - HEADACHE [None]
  - INSOMNIA [None]
  - NAUSEA [None]
